FAERS Safety Report 4517439-6 (Version None)
Quarter: 2004Q4

REPORT INFORMATION
  Report Type: 
  Country: None (occurrence: None)
  Receive Date: 20041022
  Receipt Date: 20040729
  Transmission Date: 20050328
  Serious: Yes (Other)
  Sender: FDA-Public Use
  Company Number: 2004056524

PATIENT
  Sex: Female

DRUGS (2)
  1. RELPAX [Suspect]
     Indication: ILL-DEFINED DISORDER
  2. VALDECOXIB [Suspect]
     Indication: ILL-DEFINED DISORDER

REACTIONS (3)
  - FEELING DRUNK [None]
  - HEART RATE IRREGULAR [None]
  - SWELLING FACE [None]
